FAERS Safety Report 21907882 (Version 1)
Quarter: 2023Q1

REPORT INFORMATION
  Report Type: Spontaneous
  Country: CA (occurrence: CA)
  Receive Date: 20230125
  Receipt Date: 20230125
  Transmission Date: 20230417
  Serious: Yes (Other)
  Sender: FDA-Public Use
  Company Number: CA-BAXTER-2023BAX011239

PATIENT
  Age: 31 Year
  Sex: Male

DRUGS (3)
  1. CYCLOPHOSPHAMIDE [Suspect]
     Active Substance: CYCLOPHOSPHAMIDE
     Indication: IgA nephropathy
     Dosage: DOSAGE FORM- NOT SPECIFIED
     Route: 065
  2. PREDNISONE [Suspect]
     Active Substance: PREDNISONE
     Indication: IgA nephropathy
     Dosage: DOSAGE FORM- NOT SPECIFIED
     Route: 065
  3. COSYNTROPIN HEXAACETATE [Suspect]
     Active Substance: COSYNTROPIN HEXAACETATE
     Indication: IgA nephropathy
     Dosage: DOSAGE FORM- SUSPENSION INTRAMUSCULAR, 1 MG, 2 EVERY 1 WEEKS (SYNACTHEN DEPOT ALSO KNOWN AS COSYNTRO
     Route: 030

REACTIONS (1)
  - Drug ineffective [Unknown]
